FAERS Safety Report 10732235 (Version 1)
Quarter: 2015Q1

REPORT INFORMATION
  Report Type: Spontaneous
  Country: SI (occurrence: SI)
  Receive Date: 20150123
  Receipt Date: 20150123
  Transmission Date: 20150721
  Serious: Yes (Hospitalization)
  Sender: FDA-Public Use
  Company Number: SI-CIPLA LTD.-2015SI00532

PATIENT

DRUGS (4)
  1. RISPERIDONE. [Suspect]
     Active Substance: RISPERIDONE
     Dosage: 4 MG, ONCE A DAY, ORALLY
  2. RISPERIDONE. [Suspect]
     Active Substance: RISPERIDONE
     Dosage: 25 MG EVERY 2 WEEKS, INJECTIBLE
  3. DIAZEPAM. [Suspect]
     Active Substance: DIAZEPAM
     Dosage: 5 MG, TID
  4. DIAZEPAM. [Suspect]
     Active Substance: DIAZEPAM
     Dosage: 10 MG, TID
     Route: 048

REACTIONS (6)
  - Delusion [Unknown]
  - Chest pain [Unknown]
  - Poisoning [Unknown]
  - Anxiety [Recovering/Resolving]
  - Agitation [Recovering/Resolving]
  - Tachycardia [Unknown]
